FAERS Safety Report 24986975 (Version 2)
Quarter: 2025Q1

REPORT INFORMATION
  Report Type: Spontaneous
  Country: US (occurrence: US)
  Receive Date: 20250219
  Receipt Date: 20250314
  Transmission Date: 20250408
  Serious: No
  Sender: CALLIDITAS THERAPEUTICS AB
  Company Number: US-Calliditas-2025CAL00252

PATIENT
  Age: 47 Year
  Sex: Male

DRUGS (1)
  1. TARPEYO [Suspect]
     Active Substance: BUDESONIDE
     Indication: IgA nephropathy
     Route: 048
     Dates: start: 202212, end: 202501

REACTIONS (5)
  - Product dose omission issue [Unknown]
  - Oedema [Unknown]
  - Nasopharyngitis [Unknown]
  - Peripheral swelling [Unknown]
  - Gout [Unknown]

NARRATIVE: CASE EVENT DATE: 20241209
